FAERS Safety Report 10146347 (Version 1)
Quarter: 2014Q2

REPORT INFORMATION
  Report Type: Spontaneous
  Country: US (occurrence: None)
  Receive Date: 20140430
  Receipt Date: 20140430
  Transmission Date: 20141212
  Serious: No
  Sender: FDA-Public Use
  Company Number: None

PATIENT
  Age: 55 Year
  Sex: Male
  Weight: 106.6 kg

DRUGS (1)
  1. NASACORT 55 MCG 3H187NA [Suspect]
     Indication: MULTIPLE ALLERGIES
     Dates: start: 20140424, end: 20140427

REACTIONS (4)
  - Drug ineffective [None]
  - Headache [None]
  - Nausea [None]
  - Insomnia [None]
